FAERS Safety Report 24189519 (Version 2)
Quarter: 2025Q2

REPORT INFORMATION
  Report Type: Report from Study
  Country: CA (occurrence: CA)
  Receive Date: 20240808
  Receipt Date: 20250417
  Transmission Date: 20250716
  Serious: Yes (Other)
  Sender: PFIZER
  Company Number: CA-PFIZER INC-202400231269

PATIENT
  Age: 32 Year
  Sex: Female

DRUGS (6)
  1. AZITHROMYCIN ANHYDROUS [Interacting]
     Active Substance: AZITHROMYCIN ANHYDROUS
     Route: 065
  2. KISQALI [Interacting]
     Active Substance: RIBOCICLIB SUCCINATE
     Indication: Breast cancer metastatic
     Dosage: 600 MG, 1X/DAY
     Route: 048
  3. KISQALI [Interacting]
     Active Substance: RIBOCICLIB SUCCINATE
     Dosage: 200 MG, 2X/DAY
     Route: 048
  4. KISQALI [Interacting]
     Active Substance: RIBOCICLIB SUCCINATE
     Dosage: 400 MG, 1X/DAY
     Route: 048
  5. KISQALI [Interacting]
     Active Substance: RIBOCICLIB SUCCINATE
     Route: 048
  6. KISQALI [Interacting]
     Active Substance: RIBOCICLIB SUCCINATE
     Route: 048

REACTIONS (4)
  - Drug interaction [Unknown]
  - Electrocardiogram QT prolonged [Unknown]
  - Blood test abnormal [Unknown]
  - White blood cell count decreased [Unknown]
